FAERS Safety Report 8079562-1 (Version None)
Quarter: 2012Q1

REPORT INFORMATION
  Report Type: 
  Country: None (occurrence: None)
  Receive Date: 20120128
  Receipt Date: 20110830
  Transmission Date: 20120608
  Serious: No
  Sender: FDA-Public Use
  Company Number: US-ABBOTT-11P-163-0850363-00

PATIENT
  Age: 64 Year
  Sex: Female

DRUGS (4)
  1. ATACAND HCT [Concomitant]
     Indication: BLOOD PRESSURE
     Dosage: 32/12.5MG DAILY
     Route: 048
  2. CRESTOR [Concomitant]
     Indication: BLOOD CHOLESTEROL
     Route: 048
  3. ALLOPURINOL [Concomitant]
     Indication: GOUT
     Route: 048
     Dates: start: 20090501
  4. HUMIRA [Suspect]
     Indication: PSORIASIS
     Dates: start: 20090801

REACTIONS (2)
  - HYPOAESTHESIA [None]
  - PARAESTHESIA [None]
